FAERS Safety Report 26034436 (Version 3)
Quarter: 2025Q4

REPORT INFORMATION
  Report Type: Report from Study
  Country: CO (occurrence: CO)
  Receive Date: 20251112
  Receipt Date: 20251126
  Transmission Date: 20260118
  Serious: Yes (Hospitalization, Other)
  Sender: TAKEDA
  Company Number: CO-TAKEDA-2025TUS095774

PATIENT
  Age: 61 Year
  Sex: Male
  Weight: 72 kg

DRUGS (1)
  1. IXAZOMIB [Suspect]
     Active Substance: IXAZOMIB
     Indication: Plasma cell myeloma
     Dosage: 4 MILLIGRAM
     Dates: start: 20240111, end: 20251013

REACTIONS (5)
  - Plasma cell myeloma [Unknown]
  - Cellulitis [Unknown]
  - Tendonitis [Unknown]
  - Arthralgia [Unknown]
  - Product dose omission issue [Unknown]

NARRATIVE: CASE EVENT DATE: 20251023
